FAERS Safety Report 8510589-9 (Version None)
Quarter: 2012Q3

REPORT INFORMATION
  Report Type: 
  Country: None (occurrence: None)
  Receive Date: 20120716
  Receipt Date: 20120705
  Transmission Date: 20120928
  Serious: Yes (Hospitalization)
  Sender: FDA-Public Use
  Company Number: NL-BIOGENIDEC-2012BI019882

PATIENT
  Sex: Male

DRUGS (8)
  1. MOVICOLON DRINK [Concomitant]
  2. AVONEX [Suspect]
     Indication: MULTIPLE SCLEROSIS
     Route: 030
     Dates: start: 20110120
  3. LYRICA [Concomitant]
  4. OMEPRAZOLE [Concomitant]
  5. XALCOM [Concomitant]
  6. CLONAZEPAM [Concomitant]
  7. IBUPROFEN [Concomitant]
  8. ACETAMINOPHEN [Concomitant]

REACTIONS (2)
  - CONSTIPATION [None]
  - NEURALGIA [None]
